FAERS Safety Report 5599733-3 (Version None)
Quarter: 2008Q1

REPORT INFORMATION
  Report Type: 
  Country: None (occurrence: None)
  Receive Date: 20080118
  Receipt Date: 20080118
  Transmission Date: 20080703
  Serious: Yes (Life-Threatening, Hospitalization)
  Sender: FDA-Public Use
  Company Number: None

PATIENT
  Age: 37 Year
  Sex: Female
  Weight: 95 kg

DRUGS (5)
  1. NORINYL 1+50 21-DAY [Suspect]
     Indication: ORAL CONTRACEPTION
     Dosage: 1 TAB PO QD
     Route: 048
  2. ALLEGRA [Concomitant]
  3. FLONASE [Concomitant]
  4. NAPROXEN [Concomitant]
  5. PERCOCET [Concomitant]

REACTIONS (6)
  - CHEST PAIN [None]
  - DRUG EXPOSURE DURING PREGNANCY [None]
  - FIBRIN D DIMER INCREASED [None]
  - INTERNATIONAL NORMALISED RATIO DECREASED [None]
  - PREGNANCY [None]
  - PULMONARY EMBOLISM [None]
